FAERS Safety Report 8445677-9 (Version None)
Quarter: 2012Q2

REPORT INFORMATION
  Report Type: 
  Country: None (occurrence: None)
  Receive Date: 20120618
  Receipt Date: 20120606
  Transmission Date: 20120825
  Serious: Yes (Hospitalization)
  Sender: FDA-Public Use
  Company Number: IE-VERTEX PHARMACEUTICALS INC.-AE-2012-006018

PATIENT
  Sex: Male

DRUGS (7)
  1. ADEK [Concomitant]
  2. SALBUTEROL [Concomitant]
  3. KALYDECO [Suspect]
     Indication: CYSTIC FIBROSIS
     Route: 048
     Dates: start: 20120310
  4. SEMETIDE [Concomitant]
  5. CREON [Concomitant]
  6. AZITHROMYCIN [Concomitant]
  7. SINUVENT [Concomitant]

REACTIONS (1)
  - INFECTIVE PULMONARY EXACERBATION OF CYSTIC FIBROSIS [None]
